FAERS Safety Report 4723920-7 (Version None)
Quarter: 2005Q3

REPORT INFORMATION
  Report Type: 
  Country: None (occurrence: None)
  Receive Date: 20050725
  Receipt Date: 20050627
  Transmission Date: 20060218
  Serious: Yes (Other)
  Sender: FDA-Public Use
  Company Number: ES-BRISTOL-MYERS SQUIBB COMPANY-13022280

PATIENT
  Age: 50 Year
  Sex: Male

DRUGS (4)
  1. DOVONEX [Suspect]
     Indication: PSORIASIS
     Dosage: PRN, USED LESS THAN 1 TUBE/WEEK.
     Route: 061
     Dates: start: 20010101, end: 20050601
  2. IRON [Concomitant]
     Indication: ANAEMIA
     Route: 048
  3. OMEPRAZOLE [Concomitant]
     Indication: GASTRITIS
  4. DAIVOBET [Concomitant]
     Indication: PSORIASIS
     Route: 061
     Dates: start: 20050223

REACTIONS (2)
  - HYPERTENSION [None]
  - SUPRAVENTRICULAR TACHYCARDIA [None]
